FAERS Safety Report 21327378 (Version 2)
Quarter: 2022Q3

REPORT INFORMATION
  Report Type: Report from Study
  Country: US (occurrence: US)
  Receive Date: 20220913
  Receipt Date: 20220921
  Transmission Date: 20221026
  Serious: Yes (Hospitalization, Other)
  Sender: FDA-Public Use
  Company Number: US-BRISTOL-MYERS SQUIBB COMPANY-2022-101276

PATIENT
  Age: 79 Year
  Sex: Female
  Weight: 68.04 kg

DRUGS (14)
  1. REVLIMID [Suspect]
     Active Substance: LENALIDOMIDE
     Indication: Plasma cell myeloma
     Dosage: TAKE1CAPSULE(15MGTOTAL)DAILYFOR14DAYS.TAKEONDAYS8THROUGH21THENOFF7DAYS(REVLIMIDHELDFORWEEK1OFCYCLE
     Route: 048
     Dates: start: 20200902
  2. TRAMADOL [Concomitant]
     Active Substance: TRAMADOL
  3. MELOXICAM [Concomitant]
     Active Substance: MELOXICAM
  4. PANTOPRAZOLE [Concomitant]
     Active Substance: PANTOPRAZOLE
  5. PREGABALIN [Concomitant]
     Active Substance: PREGABALIN
  6. ONDANSETRON [Concomitant]
     Active Substance: ONDANSETRON
  7. AMOXICILLIN [Concomitant]
     Active Substance: AMOXICILLIN
  8. ATORVASTATIN [Concomitant]
     Active Substance: ATORVASTATIN
  9. ACYCLOVIR [Concomitant]
     Active Substance: ACYCLOVIR
  10. DEXAMETHASONE [Concomitant]
     Active Substance: DEXAMETHASONE
  11. VITAMINS NOS [Concomitant]
     Active Substance: VITAMINS
  12. VITAMIN B12 [Concomitant]
     Active Substance: CYANOCOBALAMIN
  13. VITAMIN D3 [Concomitant]
     Active Substance: CHOLECALCIFEROL
  14. DICLOFENAC [Concomitant]
     Active Substance: DICLOFENAC

REACTIONS (3)
  - Urinary tract infection [Recovering/Resolving]
  - Arthropathy [Recovering/Resolving]
  - Off label use [Unknown]

NARRATIVE: CASE EVENT DATE: 20220811
